FAERS Safety Report 17821882 (Version 1)
Quarter: 2020Q2

REPORT INFORMATION
  Report Type: Report from Study
  Country: None (occurrence: US)
  Receive Date: 20200525
  Receipt Date: 20200525
  Transmission Date: 20200714
  Serious: Yes (Hospitalization, Other)
  Sender: FDA-Public Use
  Company Number: US-ABBVIE-19K-163-2973237-00

PATIENT
  Sex: Female
  Weight: 99.88 kg

DRUGS (1)
  1. HUMIRA [Suspect]
     Active Substance: ADALIMUMAB
     Indication: RHEUMATOID ARTHRITIS
     Route: 058

REACTIONS (11)
  - Muscle atrophy [Unknown]
  - Hypoaesthesia [Unknown]
  - Therapeutic product effect incomplete [Recovering/Resolving]
  - Contusion [Not Recovered/Not Resolved]
  - Myalgia [Unknown]
  - Neuropathy peripheral [Unknown]
  - Vasculitis [Unknown]
  - Autoimmune disorder [Unknown]
  - Foot fracture [Not Recovered/Not Resolved]
  - Arthralgia [Unknown]
  - Necrosis [Unknown]

NARRATIVE: CASE EVENT DATE: 2020
